FAERS Safety Report 11876762 (Version 1)
Quarter: 2015Q4

REPORT INFORMATION
  Report Type: Report from Study
  Country: US (occurrence: US)
  Receive Date: 20151229
  Receipt Date: 20151229
  Transmission Date: 20160305
  Serious: Yes (Hospitalization)
  Sender: FDA-Public Use
  Company Number: US-ABBVIE-15K-163-1526041-00

PATIENT
  Sex: Male

DRUGS (1)
  1. HUMIRA [Suspect]
     Active Substance: ADALIMUMAB
     Indication: PSORIATIC ARTHROPATHY
     Route: 058
     Dates: start: 201405

REACTIONS (15)
  - Gait disturbance [Not Recovered/Not Resolved]
  - Immunosuppression [Unknown]
  - Increased tendency to bruise [Not Recovered/Not Resolved]
  - Purulence [Not Recovered/Not Resolved]
  - Skin fissures [Unknown]
  - Skin discolouration [Not Recovered/Not Resolved]
  - Onychoclasis [Not Recovered/Not Resolved]
  - Rash macular [Not Recovered/Not Resolved]
  - Staphylococcal infection [Recovered/Resolved]
  - Secretion discharge [Not Recovered/Not Resolved]
  - Dry skin [Not Recovered/Not Resolved]
  - Fungal skin infection [Not Recovered/Not Resolved]
  - Skin wound [Not Recovered/Not Resolved]
  - Onychalgia [Not Recovered/Not Resolved]
  - Skin irritation [Not Recovered/Not Resolved]

NARRATIVE: CASE EVENT DATE: 2014
